FAERS Safety Report 17623058 (Version 2)
Quarter: 2020Q2

REPORT INFORMATION
  Report Type: Spontaneous
  Country: US (occurrence: US)
  Receive Date: 20200403
  Receipt Date: 20200501
  Transmission Date: 20200713
  Serious: No
  Sender: FDA-Public Use
  Company Number: US-VERTEX PHARMACEUTICALS-2020-004649

PATIENT
  Age: 54 Year
  Sex: Female
  Weight: 62 kg

DRUGS (1)
  1. TRIKAFTA [Suspect]
     Active Substance: ELEXACAFTOR\IVACAFTOR\TEZACAFTOR
     Indication: CYSTIC FIBROSIS
     Dosage: 100 MG ELEXACAFTOR/ 50 MG TEZACAFTOR/ 75 MG IVACAFTOR; 150MG IVACAFTOR,BID
     Route: 048
     Dates: start: 20200206

REACTIONS (4)
  - Headache [Unknown]
  - Nasal congestion [Unknown]
  - Rash [Recovered/Resolved]
  - Glossodynia [Unknown]

NARRATIVE: CASE EVENT DATE: 202002
